FAERS Safety Report 6938054-0 (Version None)
Quarter: 2010Q3

REPORT INFORMATION
  Report Type: 
  Country: None (occurrence: None)
  Receive Date: 20100824
  Receipt Date: 20100819
  Transmission Date: 20110219
  Serious: Yes (Other)
  Sender: FDA-Public Use
  Company Number: FR-WYE-G06562910

PATIENT
  Sex: Male

DRUGS (2)
  1. ADVIL LIQUI-GELS [Suspect]
     Dosage: UNKNOWN
     Route: 061
     Dates: start: 20090701, end: 20090701
  2. KETOPROFEN [Suspect]
     Dosage: UNKNOWN
     Route: 061
     Dates: start: 20090101, end: 20090101

REACTIONS (4)
  - DERMATITIS BULLOUS [None]
  - ERYTHEMA [None]
  - PHOTOSENSITIVITY ALLERGIC REACTION [None]
  - PRURITUS [None]
